FAERS Safety Report 8098259-5 (Version None)
Quarter: 2012Q1

REPORT INFORMATION
  Report Type: 
  Country: None (occurrence: None)
  Receive Date: 20120128
  Receipt Date: 20110807
  Transmission Date: 20120608
  Serious: No
  Sender: FDA-Public Use
  Company Number: US-ABBOTT-11P-163-0844596-00

PATIENT
  Age: 26 Year
  Sex: Female

DRUGS (10)
  1. PENTASA [Concomitant]
     Indication: CROHN'S DISEASE
  2. OMEPREZOLE [Concomitant]
     Indication: CROHN'S DISEASE
  3. SEROQUEL [Concomitant]
     Indication: BIPOLAR DISORDER
     Dosage: AT BEDTIME
  4. KLONOPIN [Concomitant]
     Indication: BIPOLAR DISORDER
  5. CYMBALTA [Concomitant]
     Indication: PAIN
     Dosage: DAILY
  6. BENTYL [Concomitant]
     Indication: CROHN'S DISEASE
  7. HUMIRA [Suspect]
     Indication: CROHN'S DISEASE
  8. WELLBUTRIN [Concomitant]
     Indication: DEPRESSION
     Dosage: DAILY
  9. SEROQUEL HR [Concomitant]
     Indication: BIPOLAR DISORDER
     Dosage: AT BEDTIME
  10. ALIGN [Concomitant]
     Indication: PRODUCT USED FOR UNKNOWN INDICATION
     Dosage: PROBIOTIC DAILY

REACTIONS (2)
  - FIBROMYALGIA [None]
  - INJECTION SITE PAIN [None]
